FAERS Safety Report 6071162-8 (Version None)
Quarter: 2009Q1

REPORT INFORMATION
  Report Type: 
  Country: None (occurrence: None)
  Receive Date: 20090209
  Receipt Date: 20090127
  Transmission Date: 20090719
  Serious: No
  Sender: FDA-Public Use
  Company Number: FI-ASTRAZENECA-2008SE05066

PATIENT
  Age: 49 Year
  Sex: Female

DRUGS (9)
  1. SEROQUEL [Suspect]
     Indication: MAJOR DEPRESSION
     Route: 048
  2. SEROQUEL [Suspect]
     Route: 048
  3. EFFEXOR [Concomitant]
     Route: 048
  4. TRIPTYL [Concomitant]
     Route: 048
  5. TEMESTA [Concomitant]
     Route: 048
  6. MICARDIS [Concomitant]
     Route: 048
  7. THYROXIN [Concomitant]
     Route: 048
  8. RISPERDAL [Concomitant]
     Route: 048
  9. ZYPREXA [Concomitant]

REACTIONS (2)
  - NEUTROPHIL COUNT DECREASED [None]
  - WHITE BLOOD CELL COUNT DECREASED [None]
